FAERS Safety Report 24270167 (Version 1)
Quarter: 2024Q3

REPORT INFORMATION
  Report Type: Spontaneous
  Country: US (occurrence: None)
  Receive Date: 20231020
  Receipt Date: 20231020
  Transmission Date: 20241016
  Serious: Yes (Life-Threatening, Hospitalization)
  Sender: Public
  Company Number: None

PATIENT
  Age: 79 Year
  Sex: Male

DRUGS (1)
  1. WARFARIN SODIUM [Suspect]
     Active Substance: WARFARIN SODIUM
     Dates: end: 20221014

REACTIONS (2)
  - Anticoagulation drug level above therapeutic [None]
  - Retroperitoneal haemorrhage [None]

NARRATIVE: CASE EVENT DATE: 00010101
